FAERS Safety Report 5150643-5 (Version None)
Quarter: 2006Q4

REPORT INFORMATION
  Report Type: 
  Country: None (occurrence: None)
  Receive Date: 20061109
  Receipt Date: 20061109
  Transmission Date: 20070319
  Serious: Yes (Life-Threatening, Hospitalization)
  Sender: FDA-Public Use
  Company Number: None

PATIENT
  Age: 56 Year
  Sex: Male
  Weight: 103.4201 kg

DRUGS (2)
  1. VIOXX [Suspect]
     Indication: JOINT ARTHROPLASTY
     Dosage: 25MG   DAILY   PO
     Route: 048
     Dates: start: 20031220, end: 20040815
  2. VIOXX [Suspect]
     Indication: ROTATOR CUFF SYNDROME
     Dosage: 25MG   DAILY   PO
     Route: 048
     Dates: start: 20031220, end: 20040815

REACTIONS (3)
  - ACUTE MYOCARDIAL INFARCTION [None]
  - INTRACARDIAC THROMBUS [None]
  - POSTOPERATIVE THROMBOSIS [None]
